FAERS Safety Report 20641692 (Version 1)
Quarter: 2022Q1

REPORT INFORMATION
  Report Type: Spontaneous
  Country: US (occurrence: US)
  Receive Date: 20220328
  Receipt Date: 20220328
  Transmission Date: 20220423
  Serious: Yes (Hospitalization)
  Sender: FDA-Public Use
  Company Number: US-CLOVIS ONCOLOGY-CLO-2022-000395

PATIENT
  Sex: Female

DRUGS (2)
  1. RUBRACA [Suspect]
     Active Substance: RUCAPARIB CAMSYLATE
     Indication: Cervix carcinoma stage III
     Dosage: UNK
     Route: 048
     Dates: start: 201801
  2. RUBRACA [Suspect]
     Active Substance: RUCAPARIB CAMSYLATE
     Dosage: 250 MG QAM AND 300 MG QPM
     Route: 048

REACTIONS (2)
  - Illness [Recovered/Resolved]
  - Product use in unapproved indication [Unknown]
